FAERS Safety Report 5454817-5 (Version None)
Quarter: 2007Q3

REPORT INFORMATION
  Report Type: 
  Country: None (occurrence: None)
  Receive Date: 20070917
  Receipt Date: 20070905
  Transmission Date: 20080115
  Serious: No
  Sender: FDA-Public Use
  Company Number: US-BOEHRINGER INGELHEIM PHARMACEUTICALS, INC.-2007-BP-20677BP

PATIENT
  Sex: Female

DRUGS (4)
  1. SPIRIVA [Suspect]
     Indication: CHRONIC OBSTRUCTIVE PULMONARY DISEASE
     Dates: start: 20050101
  2. SPIRIVA [Suspect]
     Indication: BRONCHITIS CHRONIC
  3. PROAIR HFA [Suspect]
     Dates: start: 20070501
  4. CHANTIX [Suspect]

REACTIONS (1)
  - ADVERSE DRUG REACTION [None]
